FAERS Safety Report 7879276-4 (Version None)
Quarter: 2011Q4

REPORT INFORMATION
  Report Type: 
  Country: None (occurrence: None)
  Receive Date: 20111101
  Receipt Date: 20111021
  Transmission Date: 20120403
  Serious: Yes (Other)
  Sender: FDA-Public Use
  Company Number: US-BAYER-2011-050528

PATIENT
  Age: 40 Year
  Sex: Female
  Weight: 63.492 kg

DRUGS (7)
  1. IBUPROFEN [Concomitant]
     Dosage: UNK UNK, PRN
  2. WOMEN'S MULTI [Concomitant]
  3. AZITHROMYCIN [Concomitant]
     Indication: INFECTION
  4. PRILOSEC [Concomitant]
     Indication: BILIARY COLIC
     Dosage: UNK UNK, QID
     Dates: start: 20070101, end: 20080101
  5. ASCORBIC ACID [Concomitant]
  6. YASMIN [Suspect]
     Indication: HORMONE LEVEL ABNORMAL
     Dosage: UNK
     Dates: start: 20000101, end: 20070101
  7. YAZ [Suspect]
     Indication: HORMONE LEVEL ABNORMAL
     Dosage: UNK
     Dates: start: 20070101, end: 20090101

REACTIONS (3)
  - BILIARY COLIC [None]
  - CHOLELITHIASIS [None]
  - PAIN [None]
